FAERS Safety Report 5145308-X (Version None)
Quarter: 2006Q4

REPORT INFORMATION
  Report Type: 
  Country: None (occurrence: None)
  Receive Date: 20061101
  Receipt Date: 20061020
  Transmission Date: 20070319
  Serious: Yes (Hospitalization)
  Sender: FDA-Public Use
  Company Number: 231024

PATIENT
  Sex: Female

DRUGS (4)
  1. XOLAIR [Suspect]
     Indication: ASTHMA
     Dosage: 150 MG, 1/MONTH, INTRAMUSCULAR
     Route: 030
     Dates: start: 20010226
  2. BECLOMETASONE (BECLOMETHASONE DIPROPIONATE) [Concomitant]
  3. SALMETEROL (SALMETEROL) [Concomitant]
  4. SALBUTAMOL (ALBUTEROL/ALBUTEROL SULFATE) [Concomitant]

REACTIONS (1)
  - BRAIN NEOPLASM [None]
